FAERS Safety Report 6853406-5 (Version None)
Quarter: 2010Q3

REPORT INFORMATION
  Report Type: 
  Country: None (occurrence: None)
  Receive Date: 20100717
  Receipt Date: 20071208
  Transmission Date: 20110219
  Serious: Yes (Other)
  Sender: FDA-Public Use
  Company Number: US-PFIZER INC-2007105084

PATIENT
  Sex: Male
  Weight: 77.3 kg

DRUGS (10)
  1. CHANTIX [Suspect]
     Indication: SMOKING CESSATION THERAPY
     Dates: start: 20071106, end: 20071208
  2. VICODIN ES [Suspect]
  3. SOMA [Suspect]
  4. DIAZEPAM [Concomitant]
  5. TOPROL-XL [Concomitant]
  6. SIMVASTATIN [Concomitant]
  7. DICLOFENAC [Concomitant]
  8. ANTIBIOTICS [Concomitant]
  9. DEXTROAMPHETAMINE [Concomitant]
  10. SAIZEN [Concomitant]

REACTIONS (1)
  - SUICIDAL IDEATION [None]
